FAERS Safety Report 7150389-8 (Version None)
Quarter: 2010Q4

REPORT INFORMATION
  Report Type: 
  Country: None (occurrence: None)
  Receive Date: 20101210
  Receipt Date: 20101129
  Transmission Date: 20110411
  Serious: Yes (Death, Hospitalization, Other)
  Sender: FDA-Public Use
  Company Number: US-GENZYME-CLOF-1001297

PATIENT
  Sex: Female
  Weight: 48.6 kg

DRUGS (35)
  1. CLOLAR [Suspect]
     Indication: ACUTE MYELOID LEUKAEMIA
     Dosage: 55 MG, QDX5
     Route: 042
     Dates: start: 20100929, end: 20101003
  2. CYTARABINE [Suspect]
     Indication: PRODUCT USED FOR UNKNOWN INDICATION
     Dosage: 70 MG, ONCE
     Route: 037
     Dates: start: 20100928, end: 20100928
  3. ETOPOSIDE [Suspect]
     Indication: ACUTE MYELOID LEUKAEMIA
     Dosage: 140 MG, QDX5
     Route: 042
     Dates: start: 20100929, end: 20101003
  4. CYTOXAN [Suspect]
     Indication: PRODUCT USED FOR UNKNOWN INDICATION
     Dosage: 600 MG, UNK
     Route: 065
     Dates: start: 20100929, end: 20101003
  5. CYCLOPHOSPHAMIDE [Suspect]
     Indication: ACUTE MYELOID LEUKAEMIA
     Dosage: 600 MG, QDX5
     Route: 065
     Dates: start: 20100929, end: 20101003
  6. TYLENOL (CAPLET) [Concomitant]
     Indication: PRODUCT USED FOR UNKNOWN INDICATION
     Dosage: 15 MG/KG, UNK
     Route: 065
     Dates: start: 20100928
  7. TYLENOL (CAPLET) [Concomitant]
     Dosage: 500 MG, UNK
     Route: 065
     Dates: start: 20101006
  8. TYLENOL (CAPLET) [Concomitant]
     Dosage: 650 MG, UNK
     Route: 065
     Dates: start: 20100930
  9. ALLOPURINOL [Concomitant]
     Indication: PRODUCT USED FOR UNKNOWN INDICATION
     Dosage: 250 MG, UNK
     Route: 065
     Dates: start: 20100928
  10. ALLOPURINOL [Concomitant]
     Dosage: 250 MG, UNK
     Route: 065
     Dates: start: 20100930
  11. ALLOPURINOL [Concomitant]
     Dosage: 125 MG, UNK
     Route: 065
     Dates: start: 20101004
  12. VERSED [Concomitant]
     Indication: PRODUCT USED FOR UNKNOWN INDICATION
     Dosage: 20 MG, UNK
     Route: 042
     Dates: start: 20100928
  13. VERSED [Concomitant]
     Dosage: 4.9 MG, ONCE
     Route: 042
     Dates: start: 20101005
  14. RASBURICASE [Concomitant]
     Indication: PRODUCT USED FOR UNKNOWN INDICATION
     Dosage: 6 MG, UNK
     Route: 042
     Dates: start: 20100928
  15. OMNIPAQUE 140 [Concomitant]
     Indication: PRODUCT USED FOR UNKNOWN INDICATION
     Dosage: 20.8 ML, UNK
     Route: 065
     Dates: start: 20100929
  16. OPTIRAY 350 [Concomitant]
     Indication: PRODUCT USED FOR UNKNOWN INDICATION
     Dosage: 1.5 ML, UNK
     Route: 065
     Dates: start: 20100929
  17. ACETAMINOPHEN [Concomitant]
     Indication: PRODUCT USED FOR UNKNOWN INDICATION
     Dosage: 325 MG, UNK
     Route: 065
     Dates: start: 20100929
  18. ACETAMINOPHEN [Concomitant]
     Dosage: 325 MG, UNK
     Route: 065
     Dates: start: 20100903, end: 20101001
  19. ATIVAN [Concomitant]
     Indication: PRODUCT USED FOR UNKNOWN INDICATION
     Dosage: 0.5 MG, QID
     Route: 042
     Dates: start: 20101001, end: 20101005
  20. ZOFRAN [Concomitant]
     Indication: PRODUCT USED FOR UNKNOWN INDICATION
     Dosage: 8 MG, Q4HR
     Route: 042
     Dates: start: 20100930, end: 20101005
  21. SCOPOLAMINE [Concomitant]
     Indication: PRODUCT USED FOR UNKNOWN INDICATION
     Dosage: 1 PATCH, Q3D
     Route: 062
     Dates: start: 20101002
  22. SCOPOLAMINE [Concomitant]
     Dosage: 1 PATCH, Q3D
     Route: 062
     Dates: start: 20101005
  23. SODIUM BICARBONATE [Concomitant]
     Indication: PRODUCT USED FOR UNKNOWN INDICATION
     Dosage: CONTINUOUS
     Route: 042
     Dates: start: 20101004
  24. NEUPOGEN [Concomitant]
     Indication: PRODUCT USED FOR UNKNOWN INDICATION
     Dosage: 300 MCG, QS
     Route: 042
     Dates: start: 20101004
  25. MICAFUNGIN [Concomitant]
     Indication: PRODUCT USED FOR UNKNOWN INDICATION
     Dosage: 150 MG, QD
     Route: 042
     Dates: start: 20101005
  26. MEROPENEM [Concomitant]
     Indication: PRODUCT USED FOR UNKNOWN INDICATION
     Dosage: 20 MG/KG, Q12HR
     Route: 042
     Dates: start: 20100930
  27. VANCOMYCIN HCL [Concomitant]
     Indication: PRODUCT USED FOR UNKNOWN INDICATION
     Dosage: 750 MG, UNK
     Route: 065
     Dates: start: 20100930, end: 20101004
  28. BUMEX [Concomitant]
     Indication: BLOOD CREATININE INCREASED
     Dosage: 1 MG, UNK
     Route: 065
     Dates: start: 20101001
  29. HYDROCORTISONE [Concomitant]
     Indication: PREMEDICATION
     Dosage: 950 MG, UNK
     Route: 065
     Dates: start: 20101001, end: 20101003
  30. BACTRIM [Concomitant]
     Indication: PRODUCT USED FOR UNKNOWN INDICATION
     Dosage: 120 MG, UNK
     Route: 065
     Dates: start: 20101001, end: 20101003
  31. BENADRYL [Concomitant]
     Indication: PRODUCT USED FOR UNKNOWN INDICATION
     Dosage: 50 MG, UNK
     Route: 065
     Dates: start: 20101002
  32. BENADRYL [Concomitant]
     Dosage: 24 MG, ONCE
     Route: 042
     Dates: start: 20101005, end: 20101005
  33. BENADRYL [Concomitant]
     Dosage: 50 MG, ONCE
     Route: 042
     Dates: start: 20101005, end: 20101005
  34. BENADRYL [Concomitant]
     Dosage: 25 MG, ONCE
     Route: 048
     Dates: start: 20101005, end: 20101005
  35. TRANSDERM [Concomitant]
     Indication: PRODUCT USED FOR UNKNOWN INDICATION
     Dosage: 1.5 MG, UNK
     Route: 062
     Dates: start: 20101002

REACTIONS (2)
  - MULTI-ORGAN FAILURE [None]
  - RENAL FAILURE [None]
